FAERS Safety Report 7824689 (Version 3)
Quarter: 2013Q2

REPORT INFORMATION
  Report Type: Report from Study
  Country: US (occurrence: US)
  Receive Date: 20110224
  Receipt Date: 20130523
  Transmission Date: 20140414
  Serious: Yes (Death, Other)
  Sender: FDA-Public Use
  Company Number: US-CELGENEUS-163-C5013-10111477

PATIENT
  Age: 78 Year
  Sex: Female
  Weight: 55.8 kg

DRUGS (7)
  1. CC-5013 [Suspect]
     Indication: PLASMA CELL MYELOMA
     Dosage: 15 MILLIGRAM
     Route: 048
     Dates: start: 20091007, end: 20110110
  2. CC-5013 [Suspect]
     Dosage: 10 MILLIGRAM
     Route: 048
     Dates: start: 20101013, end: 20110110
  3. DEXAMETHASONE [Suspect]
     Indication: PLASMA CELL MYELOMA
     Dosage: 20 MILLIGRAM
     Route: 048
     Dates: start: 20091007
  4. DEXAMETHASONE [Suspect]
     Dosage: 20 MILLIGRAM
     Route: 048
     Dates: start: 20101013, end: 20110105
  5. ASPIRIN [Concomitant]
     Indication: THROMBOSIS PROPHYLAXIS
     Dosage: 81 MILLIGRAM
     Route: 048
     Dates: start: 20091111
  6. LEVOTHYROXINE [Concomitant]
     Indication: HYPOTHYROIDISM
     Dosage: 50 MICROGRAM
     Route: 048
     Dates: start: 2003
  7. LISINOPRIL [Concomitant]
     Indication: HYPERTENSION
     Dosage: 20 MILLIGRAM
     Route: 048
     Dates: start: 2004

REACTIONS (1)
  - Invasive ductal breast carcinoma [Fatal]
